FAERS Safety Report 5711377-9 (Version None)
Quarter: 2008Q2

REPORT INFORMATION
  Report Type: 
  Country: None (occurrence: None)
  Receive Date: 20080421
  Receipt Date: 20080415
  Transmission Date: 20081010
  Serious: Yes (Other)
  Sender: FDA-Public Use
  Company Number: D0056939A

PATIENT
  Sex: Female

DRUGS (1)
  1. SULTANOL [Suspect]
     Dosage: 3MG UNKNOWN
     Route: 055

REACTIONS (3)
  - ASTHMA [None]
  - NAUSEA [None]
  - PHARMACEUTICAL PRODUCT COMPLAINT [None]
